FAERS Safety Report 4482100-3 (Version None)
Quarter: 2004Q4

REPORT INFORMATION
  Report Type: 
  Country: None (occurrence: None)
  Receive Date: 20041020
  Receipt Date: 20040805
  Transmission Date: 20050328
  Serious: Yes (Hospitalization, Other)
  Sender: FDA-Public Use
  Company Number: USA040771582

PATIENT
  Age: 79 Year
  Sex: Female
  Weight: 86 kg

DRUGS (3)
  1. HUMALOG [Suspect]
     Dosage: 22 U DAY
  2. GLIPIZIDE [Concomitant]
  3. ACTOS [Concomitant]

REACTIONS (18)
  - ANGINA PECTORIS [None]
  - ARTHRITIS [None]
  - BLOOD GLUCOSE DECREASED [None]
  - BODY HEIGHT DECREASED [None]
  - CATARACT OPERATION [None]
  - CEREBROVASCULAR ACCIDENT [None]
  - DIABETES MELLITUS INADEQUATE CONTROL [None]
  - DRUG INEFFECTIVE [None]
  - FEELING HOT [None]
  - INCISION SITE HAEMORRHAGE [None]
  - KNEE ARTHROPLASTY [None]
  - MEDICATION ERROR [None]
  - PHARMACEUTICAL PRODUCT COMPLAINT [None]
  - POST PROCEDURAL HAEMORRHAGE [None]
  - RETINAL DISORDER [None]
  - STENT PLACEMENT [None]
  - TREMOR [None]
  - VISUAL ACUITY REDUCED [None]
